FAERS Safety Report 6283925-4 (Version None)
Quarter: 2009Q3

REPORT INFORMATION
  Report Type: 
  Country: None (occurrence: None)
  Receive Date: 20090722
  Receipt Date: 20090722
  Transmission Date: 20100115
  Serious: Yes (Other)
  Sender: FDA-Public Use
  Company Number: None

PATIENT
  Age: 40 Year
  Sex: Male

DRUGS (1)
  1. HIBICLENS [Suspect]
     Dosage: SINGLE USE TOP
     Route: 061
     Dates: start: 20090701, end: 20090708

REACTIONS (1)
  - EXFOLIATIVE RASH [None]
